FAERS Safety Report 9254923 (Version 2)
Quarter: 2013Q3

REPORT INFORMATION
  Report Type: Report from Study
  Country: BR (occurrence: BR)
  Receive Date: 20130425
  Receipt Date: 20130717
  Transmission Date: 20140515
  Serious: Yes (Hospitalization, Other)
  Sender: FDA-Public Use
  Company Number: PHHY2013BR040825

PATIENT
  Sex: Male

DRUGS (7)
  1. DIOVAN HCT [Suspect]
     Dosage: 320/12.5 MG, UNK
  2. ALDACTONE [Concomitant]
     Dosage: 1 TABLET (25 MG), DAILY
     Route: 048
     Dates: start: 201305
  3. LOSARTAN [Concomitant]
     Indication: HYPERTENSION
     Dosage: 2 TABLETS (50 MG), DAILY
     Route: 048
     Dates: start: 201305
  4. CLOPIDOGREL [Concomitant]
     Dosage: 1 TABLET (75 MG), DAILY
     Route: 048
     Dates: start: 201305
  5. OMEPRAZOLE [Concomitant]
     Indication: GASTRITIS PROPHYLAXIS
     Dosage: 1 TABLET (40 MG), DAILY
     Route: 048
     Dates: start: 201305
  6. ATORVASTATIN [Concomitant]
     Indication: BLOOD CHOLESTEROL INCREASED
     Dosage: 1 TABLET (40 MG), DAILY
     Route: 048
     Dates: start: 201305
  7. NPH INSULIN [Concomitant]
     Indication: DIABETES MELLITUS
     Dosage: 40 IU, DAILY
     Dates: start: 201305

REACTIONS (10)
  - Infarction [Recovered/Resolved]
  - Ischaemic cardiomyopathy [Recovering/Resolving]
  - Arterial occlusive disease [Not Recovered/Not Resolved]
  - Myocardial necrosis [Not Recovered/Not Resolved]
  - Cardiac disorder [Unknown]
  - Fluid retention [Recovered/Resolved]
  - Local swelling [Recovered/Resolved]
  - Vein disorder [Unknown]
  - Fatigue [Recovering/Resolving]
  - Insomnia [Unknown]
